FAERS Safety Report 24917391 (Version 1)
Quarter: 2025Q1

REPORT INFORMATION
  Report Type: Spontaneous
  Country: US (occurrence: None)
  Receive Date: 20250203
  Receipt Date: 20250203
  Transmission Date: 20250409
  Serious: Yes (Hospitalization)
  Sender: FDA-CTU
  Company Number: None

PATIENT
  Age: 90 Year
  Sex: Female
  Weight: 66.8 kg

DRUGS (1)
  1. DAPSONE [Suspect]
     Active Substance: DAPSONE
     Indication: Pemphigoid
     Dosage: FREQUENCY : DAILY;?
     Route: 048
     Dates: start: 20241206, end: 20241217

REACTIONS (3)
  - Dyspnoea [None]
  - Hypoxia [None]
  - Methaemoglobinaemia [None]

NARRATIVE: CASE EVENT DATE: 20241215
